FAERS Safety Report 9508671 (Version 1)
Quarter: 2013Q3

REPORT INFORMATION
  Report Type: Report from Study
  Country: US (occurrence: US)
  Receive Date: 20130909
  Receipt Date: 20130909
  Transmission Date: 20140515
  Serious: Yes (Hospitalization)
  Sender: FDA-Public Use
  Company Number: US-ACTELION-A-US2013-88225

PATIENT
  Age: 71 Year
  Sex: Male

DRUGS (1)
  1. VENTAVIS [Suspect]
     Indication: PULMONARY ARTERIAL HYPERTENSION
     Dosage: UNK
     Route: 055

REACTIONS (6)
  - Pulmonary oedema [Recovering/Resolving]
  - Muscle strain [Recovering/Resolving]
  - Back pain [Recovering/Resolving]
  - Cholelithiasis [Recovering/Resolving]
  - Hernia [Recovering/Resolving]
  - Abdominal pain [Recovering/Resolving]
